FAERS Safety Report 4380145-5 (Version None)
Quarter: 2004Q2

REPORT INFORMATION
  Report Type: 
  Country: None (occurrence: None)
  Receive Date: 20040614
  Receipt Date: 20040330
  Transmission Date: 20050107
  Serious: No
  Sender: FDA-Public Use
  Company Number: M04-341-099

PATIENT
  Age: 53 Year
  Sex: Male

DRUGS (10)
  1. VELCADE [Suspect]
     Indication: MULTIPLE MYELOMA
     Dates: start: 20031125, end: 20040112
  2. AMIODARONE HCL [Concomitant]
  3. FUROSEMIDE [Concomitant]
  4. MELPHALAN [Concomitant]
  5. OXEPAM(OXAZEPAM) [Concomitant]
  6. PREVACID [Concomitant]
  7. PROPAFENONE HYDROCHLORIDE [Concomitant]
  8. SOTALOL HCL [Concomitant]
  9. SPIRONOLACTONE [Concomitant]
  10. WARFARIN SODIUM [Concomitant]

REACTIONS (6)
  - FLUID OVERLOAD [None]
  - HYPOTENSION [None]
  - NAUSEA [None]
  - NEUROPATHY PERIPHERAL [None]
  - PAIN IN EXTREMITY [None]
  - PARAESTHESIA [None]
